FAERS Safety Report 9558539 (Version 1)
Quarter: 2013Q3

REPORT INFORMATION
  Report Type: Spontaneous
  Country: ES (occurrence: ES)
  Receive Date: 20130926
  Receipt Date: 20130926
  Transmission Date: 20140515
  Serious: Yes (Other)
  Sender: FDA-Public Use
  Company Number: ES-ABBVIE-13P-144-1149106-00

PATIENT
  Age: 44 Year
  Sex: Male

DRUGS (4)
  1. KALETRA 100/25 [Suspect]
     Indication: HIV INFECTION
     Route: 050
     Dates: start: 20100507, end: 20121231
  2. PEGINTERFERON ALFA-2A [Suspect]
     Indication: HEPATITIS C
     Route: 058
     Dates: start: 20111021, end: 20121002
  3. RIBAVIRINE [Suspect]
     Indication: HEPATITIS C
     Dates: start: 20111021, end: 20121002
  4. TRUVADA [Suspect]
     Indication: HIV INFECTION
     Route: 048
     Dates: start: 20100507, end: 20121231

REACTIONS (1)
  - Hepatocellular carcinoma [Not Recovered/Not Resolved]
